FAERS Safety Report 5381967-4 (Version None)
Quarter: 2007Q3

REPORT INFORMATION
  Report Type: 
  Country: None (occurrence: None)
  Receive Date: 20070709
  Receipt Date: 20070703
  Transmission Date: 20080115
  Serious: Yes (Disabling)
  Sender: FDA-Public Use
  Company Number: A0661439A

PATIENT
  Age: 65 Year
  Sex: Male

DRUGS (3)
  1. LEUKERAN [Suspect]
     Dosage: 4MG PER DAY
     Route: 048
     Dates: start: 20070702
  2. INSULIN [Concomitant]
  3. SYNTHROID [Concomitant]

REACTIONS (1)
  - NIGHT SWEATS [None]
